FAERS Safety Report 13668280 (Version 1)
Quarter: 2017Q2

REPORT INFORMATION
  Report Type: Spontaneous
  Country: US (occurrence: US)
  Receive Date: 20170619
  Receipt Date: 20170619
  Transmission Date: 20170830
  Serious: Yes (Hospitalization, Disabling)
  Sender: FDA-Public Use
  Company Number: None

PATIENT
  Age: 40 Year
  Sex: Female
  Weight: 62.1 kg

DRUGS (5)
  1. LYSINE [Concomitant]
     Active Substance: LYSINE
  2. COCONUT OIL [Concomitant]
     Active Substance: COCONUT OIL
  3. ATIVAN [Suspect]
     Active Substance: LORAZEPAM
     Indication: ANXIETY
     Route: 048
     Dates: start: 20150801, end: 20170513
  4. KLONOPIN [Suspect]
     Active Substance: CLONAZEPAM
  5. TRYPTOPHAN [Concomitant]
     Active Substance: TRYPTOPHAN

REACTIONS (30)
  - Chills [None]
  - Loss of personal independence in daily activities [None]
  - Fear [None]
  - Feeding disorder [None]
  - Electric shock [None]
  - Marital problem [None]
  - Disturbance in social behaviour [None]
  - Heart rate increased [None]
  - Tremor [None]
  - Malaise [None]
  - Withdrawal syndrome [None]
  - Depersonalisation/derealisation disorder [None]
  - Derealisation [None]
  - Pyrexia [None]
  - Dementia [None]
  - Confusional state [None]
  - Head titubation [None]
  - Pain in jaw [None]
  - Myalgia [None]
  - Cognitive disorder [None]
  - Suicidal behaviour [None]
  - Palpitations [None]
  - Fatigue [None]
  - Drug use disorder [None]
  - Insomnia [None]
  - Nausea [None]
  - Weight decreased [None]
  - Toothache [None]
  - Impaired driving ability [None]
  - Amnesia [None]

NARRATIVE: CASE EVENT DATE: 20170511
